FAERS Safety Report 10066442 (Version 3)
Quarter: 2014Q2

REPORT INFORMATION
  Report Type: Report from Study
  Country: MX (occurrence: MX)
  Receive Date: 20140408
  Receipt Date: 20140617
  Transmission Date: 20141212
  Serious: No
  Sender: FDA-Public Use
  Company Number: PHHY2014MX041945

PATIENT
  Age: 78 Year
  Sex: Male

DRUGS (12)
  1. EXELON PATCH [Suspect]
     Indication: SENILE DEMENTIA
     Dosage: 4.6 MG (PATCH 5CM2), DAILY
     Route: 062
     Dates: start: 20091112
  2. EXELON PATCH [Suspect]
     Dosage: 9.5 MG (PATCH 10 CM2), DAILY
     Route: 062
  3. LASILACTON [Concomitant]
     Indication: DIURETIC THERAPY
     Dosage: UNK UKN, UNK (1/3 UKN)
  4. BENEXOL [Concomitant]
     Indication: VITAMIN SUPPLEMENTATION
     Dosage: 1 UKN, DAILY
  5. FOLIC ACID [Concomitant]
     Indication: VITAMIN SUPPLEMENTATION
     Dosage: 1 UKN, DAILY
  6. LOFTYL [Concomitant]
     Dosage: UNK UKN, UNK (1/3 UNK)
  7. ASPIRIN PROTEC [Concomitant]
     Dosage: 0.5 UKN, DAILY
  8. NEXIUM//ESOMEPRAZOLE MAGNESIUM [Concomitant]
     Indication: OESOPHAGEAL ULCER
     Dosage: 1 UKN, DAILY
  9. ONGLYZA [Concomitant]
     Indication: DIABETES MELLITUS
     Dosage: 1 UKN, DAILY
  10. GLUCOFAGE [Concomitant]
     Indication: DIABETES MELLITUS
     Dosage: 2 UKN, DAILY
  11. SINTROM [Concomitant]
     Indication: THROMBOPHLEBITIS
     Dosage: 0.25 UKN, DAILY
  12. VASCULFLOW [Concomitant]
     Indication: DIABETIC ULCER
     Dosage: UNK UKN, (3/4 UKN DAILY)

REACTIONS (5)
  - Erythema [Not Recovered/Not Resolved]
  - Pruritus [Not Recovered/Not Resolved]
  - Application site erythema [Not Recovered/Not Resolved]
  - Application site reaction [Not Recovered/Not Resolved]
  - Depression [Unknown]
